FAERS Safety Report 24529419 (Version 2)
Quarter: 2024Q4

REPORT INFORMATION
  Report Type: Spontaneous
  Country: US (occurrence: US)
  Receive Date: 20241021
  Receipt Date: 20241114
  Transmission Date: 20250115
  Serious: Yes (Other)
  Sender: PERRIGO
  Company Number: US-PERRIGO-24US009629

PATIENT
  Sex: Male
  Weight: 83.9 kg

DRUGS (1)
  1. PHENYLEPHRINE HYDROCHLORIDE [Suspect]
     Active Substance: PHENYLEPHRINE HYDROCHLORIDE
     Indication: Nasal congestion
     Dosage: ONE SPRAY IN EACH NOSTRIL, 10 TIMES DAILY
     Route: 045
     Dates: start: 2014, end: 202409

REACTIONS (11)
  - Drug dependence [Recovered/Resolved]
  - Energy increased [Recovered/Resolved]
  - Palpitations [Recovering/Resolving]
  - Insomnia [Unknown]
  - Cardiovascular disorder [Unknown]
  - Hypoaesthesia [Unknown]
  - Heart rate increased [Unknown]
  - Visual impairment [Not Recovered/Not Resolved]
  - Incorrect product administration duration [Recovered/Resolved]
  - Inappropriate schedule of product administration [Recovered/Resolved]
  - Incorrect dose administered [Recovered/Resolved]

NARRATIVE: CASE EVENT DATE: 20140101
